FAERS Safety Report 5066082-1 (Version None)
Quarter: 2006Q3

REPORT INFORMATION
  Report Type: 
  Country: None (occurrence: None)
  Receive Date: 20060725
  Receipt Date: 20060712
  Transmission Date: 20061208
  Serious: Yes (Hospitalization, Disabling)
  Sender: FDA-Public Use
  Company Number: 111479ISR

PATIENT
  Age: 77 Year
  Sex: Female

DRUGS (5)
  1. CO-TENIDONE ATENOLOL CHLORTHALIDONE [Suspect]
     Dosage: ORAL
     Route: 048
     Dates: end: 20060621
  2. ACETYLSALICYLIC ACID SRT [Concomitant]
  3. HYOSCINE HBR HYT [Concomitant]
  4. NIFEDIPINE [Concomitant]
  5. RANITIDINE [Concomitant]

REACTIONS (1)
  - HYPONATRAEMIA [None]
